FAERS Safety Report 9882076 (Version 1)
Quarter: 2014Q1

REPORT INFORMATION
  Report Type: Spontaneous
  Country: DE (occurrence: SE)
  Receive Date: 20140207
  Receipt Date: 20140207
  Transmission Date: 20141002
  Serious: Yes (Hospitalization, Other)
  Sender: FDA-Public Use
  Company Number: SE-FRI-1000054037

PATIENT
  Age: 79 Year
  Sex: Female

DRUGS (21)
  1. MEMANTINE [Suspect]
     Indication: APRAXIA
     Dosage: 5 MG
     Route: 048
     Dates: start: 20131001, end: 20131006
  2. MEMANTINE [Suspect]
     Indication: APRAXIA
     Dosage: 10 MG
     Route: 048
     Dates: start: 20131007, end: 20131008
  3. OMEPRAZOLE [Concomitant]
     Dosage: 20 MG
     Dates: start: 20090121
  4. INOLAXOL [Concomitant]
     Dosage: 2 DF
     Dates: start: 20080505
  5. COLIFOAM [Concomitant]
     Dosage: 5 ML
     Route: 054
     Dates: start: 20120727
  6. BEHEPAN [Concomitant]
     Dosage: 1 MG
     Dates: start: 20110307
  7. IMOVANE [Concomitant]
     Dosage: 7.5 MG
     Dates: start: 20120822
  8. SERTRALIN ACTAVIS [Concomitant]
     Dosage: 200 MG
     Dates: start: 20121217
  9. REMINYL [Concomitant]
     Dosage: 16 MG
     Dates: start: 20100521
  10. REMINYL [Concomitant]
     Dosage: 8 MG
     Dates: start: 20110316
  11. SPIRIVA [Concomitant]
     Dosage: 18 MCG
     Dates: start: 20120110
  12. ALBYL [Concomitant]
     Dosage: 0.5 TABLET MONDAY, WEDNESDAY, FRIDAY
     Dates: start: 20130604
  13. PAPAVERIN RECIP [Concomitant]
     Dosage: 1-3 TABLETS 1-3 TIMES DAILY
     Dates: start: 20130222
  14. KLYX [Concomitant]
     Dosage: 1MG/ML + 250 MG/ML 120 ML TUBES
     Route: 054
     Dates: start: 20011213
  15. LOPERAMIDE [Concomitant]
     Dosage: 1-2 CAPSULES;MAX 8 TIMES DAILY
     Dates: start: 20080502
  16. CITODON [Concomitant]
     Dosage: 500 MG/30 MG;1-2 TABLETS;MAX 4 TIMES DAILY; NOT WITH ALVEDON
     Dates: start: 20130911
  17. ALVEDON [Concomitant]
     Dosage: 1-2 TABS;MAX 4 TIMES DAILY; NOT WITH CITODON
     Dates: start: 20120417
  18. OXASCAND [Concomitant]
     Dosage: MAX 3 DAILY
     Dates: start: 20090121
  19. PROPAVAN [Concomitant]
     Dosage: 0.5-1 TABLET
     Dates: start: 20121217
  20. ATROVENT [Concomitant]
     Dosage: 1-2 SPRAYS 2-3 TIMES DAILY. MAX 6 DOSES PER DAY
     Route: 045
     Dates: start: 20130604
  21. VISCOTEARS [Concomitant]
     Dosage: 1-2 DROPS 3 TIMES DAILY
     Dates: start: 20130410

REACTIONS (2)
  - Hallucination [Recovered/Resolved]
  - Muscle spasms [Recovered/Resolved]
